FAERS Safety Report 25757665 (Version 1)
Quarter: 2025Q3

REPORT INFORMATION
  Report Type: Spontaneous
  Country: US (occurrence: US)
  Receive Date: 20250903
  Receipt Date: 20250903
  Transmission Date: 20251021
  Serious: Yes (Life-Threatening, Other)
  Sender: ELI LILLY AND COMPANY
  Company Number: US-ELI_LILLY_AND_COMPANY-US202509000379

PATIENT
  Age: 61 Year
  Sex: Female

DRUGS (1)
  1. HUMALOG [Suspect]
     Active Substance: INSULIN LISPRO
     Indication: Type 2 diabetes mellitus
     Route: 065
     Dates: start: 2024

REACTIONS (19)
  - Hypersensitivity [Recovered/Resolved]
  - Myocardial infarction [Recovered/Resolved]
  - Blood pressure increased [Unknown]
  - Ketoacidosis [Unknown]
  - Visual impairment [Recovered/Resolved]
  - Tachycardia [Unknown]
  - Speech disorder [Unknown]
  - Herpes zoster [Unknown]
  - Atrial fibrillation [Unknown]
  - Dyspnoea [Unknown]
  - Cardiac disorder [Unknown]
  - Weight increased [Unknown]
  - Blood glucose increased [Unknown]
  - Neuropathy peripheral [Unknown]
  - Peripheral swelling [Unknown]
  - Motion sickness [Unknown]
  - Dizziness [Unknown]
  - Fatigue [Unknown]
  - Glycosylated haemoglobin abnormal [Unknown]

NARRATIVE: CASE EVENT DATE: 20240101
